FAERS Safety Report 7688403-3 (Version None)
Quarter: 2011Q3

REPORT INFORMATION
  Report Type: 
  Country: None (occurrence: None)
  Receive Date: 20110817
  Receipt Date: 20110805
  Transmission Date: 20111222
  Serious: Yes (Hospitalization)
  Sender: FDA-Public Use
  Company Number: CZ-SANOFI-AVENTIS-2011SA044401

PATIENT
  Age: 70 Year
  Sex: Male
  Weight: 90 kg

DRUGS (9)
  1. WARFARIN SODIUM [Concomitant]
     Dosage: 21MG WEEKLY
  2. DRONEDARONE HCL [Suspect]
     Indication: ATRIAL FIBRILLATION
     Route: 048
     Dates: start: 20110222
  3. THIAZIDES [Concomitant]
  4. BETALOC [Concomitant]
  5. MOXONIDINE [Concomitant]
  6. LOSARTAN POTASSIUM [Concomitant]
  7. PERINDOPRIL [Concomitant]
  8. ROSUVASTATIN [Concomitant]
  9. INSULIN [Concomitant]

REACTIONS (1)
  - ANGINA UNSTABLE [None]
